FAERS Safety Report 23814871 (Version 1)
Quarter: 2024Q2

REPORT INFORMATION
  Report Type: Spontaneous
  Country: CN (occurrence: None)
  Receive Date: 20240503
  Receipt Date: 20240503
  Transmission Date: 20240716
  Serious: Yes (Hospitalization)
  Sender: FDA-Public Use
  Company Number: 2024A103117

PATIENT
  Age: 84 Year
  Sex: Male

DRUGS (1)
  1. NEXIUM [Suspect]
     Active Substance: ESOMEPRAZOLE MAGNESIUM
     Indication: Anaemia
     Route: 048
     Dates: start: 20210414, end: 20210420

REACTIONS (3)
  - Nervous system disorder [Recovering/Resolving]
  - Disorganised speech [Recovering/Resolving]
  - Prosopagnosia [Recovering/Resolving]

NARRATIVE: CASE EVENT DATE: 20240422
